FAERS Safety Report 8115024-0 (Version None)
Quarter: 2012Q1

REPORT INFORMATION
  Report Type: 
  Country: None (occurrence: None)
  Receive Date: 20120131
  Receipt Date: 20120127
  Transmission Date: 20120608
  Serious: Yes (Death, Hospitalization)
  Sender: FDA-Public Use
  Company Number: 2011SP037140

PATIENT
  Age: 29 Year
  Sex: Female
  Weight: 76.6579 kg

DRUGS (1)
  1. NUVARING [Suspect]
     Indication: CONTRACEPTION
     Dates: start: 20091101, end: 20100601

REACTIONS (18)
  - INJURY [None]
  - LOSS OF CONSCIOUSNESS [None]
  - ANURIA [None]
  - TORSADE DE POINTES [None]
  - PULMONARY EMBOLISM [None]
  - MIGRAINE [None]
  - ANXIETY [None]
  - PLEURAL ADHESION [None]
  - UNRESPONSIVE TO STIMULI [None]
  - VISCERAL CONGESTION [None]
  - VISCERAL OEDEMA [None]
  - PETECHIAE [None]
  - DEEP VEIN THROMBOSIS [None]
  - CARDIAC ARREST [None]
  - FALL [None]
  - PULSELESS ELECTRICAL ACTIVITY [None]
  - CONVULSION [None]
  - VENTRICULAR FIBRILLATION [None]
